FAERS Safety Report 16706881 (Version 2)
Quarter: 2019Q3

REPORT INFORMATION
  Report Type: Report from Study
  Country: HU (occurrence: HU)
  Receive Date: 20190815
  Receipt Date: 20190823
  Transmission Date: 20191004
  Serious: Yes (Hospitalization)
  Sender: FDA-Public Use
  Company Number: HU-PFIZER INC-2019349718

PATIENT
  Age: 67 Year
  Sex: Male
  Weight: 55 kg

DRUGS (13)
  1. AVELUMAB [Suspect]
     Active Substance: AVELUMAB
     Indication: NON-SMALL CELL LUNG CANCER
     Dosage: 800 MG, UNK
     Route: 042
     Dates: start: 20190708
  2. CETUXIMAB. [Suspect]
     Active Substance: CETUXIMAB
     Dosage: 397 MG, UNK
     Route: 042
  3. AVELUMAB [Suspect]
     Active Substance: AVELUMAB
     Dosage: 800 MG, UNK
     Route: 042
     Dates: end: 20190729
  4. CETUXIMAB. [Suspect]
     Active Substance: CETUXIMAB
     Dosage: 410 MG, UNK
     Route: 042
     Dates: end: 20190729
  5. CETUXIMAB. [Suspect]
     Active Substance: CETUXIMAB
     Indication: NON-SMALL CELL LUNG CANCER
     Dosage: 397 MG, UNK
     Route: 042
     Dates: start: 20190708
  6. CETUXIMAB. [Suspect]
     Active Substance: CETUXIMAB
     Dosage: 397 MG, UNK
     Route: 042
  7. AVELUMAB [Suspect]
     Active Substance: AVELUMAB
     Dosage: 800 MG, UNK
     Route: 042
  8. AVELUMAB [Suspect]
     Active Substance: AVELUMAB
     Dosage: 800 MG, UNK
     Route: 042
  9. GEMCITABINE HYDROCHLORIDE. [Suspect]
     Active Substance: GEMCITABINE HYDROCHLORIDE
     Indication: NON-SMALL CELL LUNG CANCER
     Dosage: 2000 MG, UNK
     Route: 042
     Dates: start: 20190708
  10. CETUXIMAB. [Suspect]
     Active Substance: CETUXIMAB
     Dosage: 397 MG, UNK
     Route: 042
  11. CISPLATIN. [Suspect]
     Active Substance: CISPLATIN
     Dosage: 123 MG, UNK
     Route: 042
     Dates: end: 20190729
  12. GEMCITABINE HYDROCHLORIDE. [Suspect]
     Active Substance: GEMCITABINE HYDROCHLORIDE
     Dosage: 2050 MG, UNK
     Route: 042
     Dates: end: 20190729
  13. CISPLATIN. [Suspect]
     Active Substance: CISPLATIN
     Indication: NON-SMALL CELL LUNG CANCER
     Dosage: 119 MG, UNK
     Route: 042
     Dates: start: 20190708

REACTIONS (1)
  - Dehydration [Recovered/Resolved]

NARRATIVE: CASE EVENT DATE: 20190805
